FAERS Safety Report 9057653 (Version 1)
Quarter: 2013Q1

REPORT INFORMATION
  Report Type: Spontaneous
  Country: US (occurrence: None)
  Receive Date: 20130204
  Receipt Date: 20130204
  Transmission Date: 20140127
  Serious: Yes (Hospitalization, Other)
  Sender: FDA-Public Use
  Company Number: None

PATIENT
  Age: 23 Year
  Sex: Female
  Weight: 71.67 kg

DRUGS (1)
  1. ADULT ROBITUSSIN PEAK COLD MULT [Suspect]
     Dosage: 4 FL OZ. -118 ML-  4 TSPS EVERY 4 HRS  PO
     Route: 048
     Dates: start: 20121222, end: 20121226

REACTIONS (4)
  - Diarrhoea [None]
  - Expired drug administered [None]
  - Dehydration [None]
  - Exposure during pregnancy [None]
